FAERS Safety Report 7686532-1 (Version None)
Quarter: 2011Q3

REPORT INFORMATION
  Report Type: 
  Country: None (occurrence: None)
  Receive Date: 20110816
  Receipt Date: 20110811
  Transmission Date: 20111222
  Serious: Yes (Death)
  Sender: FDA-Public Use
  Company Number: JP-SANOFI-AVENTIS-2011SA051586

PATIENT
  Age: 63 Year
  Sex: Male

DRUGS (6)
  1. AVASTIN [Suspect]
     Dosage: FREQUENCY 1 PER DAY
     Route: 041
     Dates: start: 20110427
  2. AVASTIN [Suspect]
     Indication: COLON CANCER
     Dosage: FREQUENCY : 1 PER DAY
     Route: 041
     Dates: start: 20110608, end: 20110608
  3. XELODA [Suspect]
     Indication: COLON CANCER
     Dosage: FREQUENCY: TWO TIMES PER THREE WEEK
     Route: 048
     Dates: start: 20110427
  4. OXALIPLATIN [Suspect]
     Indication: COLON CANCER
     Route: 041
     Dates: start: 20110427
  5. OXALIPLATIN [Suspect]
     Route: 041
     Dates: start: 20110722, end: 20110726
  6. XELODA [Suspect]
     Dosage: FREQUENCY: TWO TIMES PER THREE WEEK
     Route: 048
     Dates: start: 20110722, end: 20110726

REACTIONS (1)
  - DEATH [None]
